FAERS Safety Report 18339151 (Version 1)
Quarter: 2020Q4

REPORT INFORMATION
  Report Type: Spontaneous
  Country: IT (occurrence: IT)
  Receive Date: 20201002
  Receipt Date: 20201002
  Transmission Date: 20210113
  Serious: Yes (Life-Threatening, Hospitalization, Other)
  Sender: FDA-Public Use
  Company Number: IT-HIKMA PHARMACEUTICALS USA INC.-IT-H14001-20-52213

PATIENT
  Age: 55 Year
  Sex: Female

DRUGS (15)
  1. FUROSEMIDE. [Concomitant]
     Active Substance: FUROSEMIDE
     Indication: HAEMODYNAMIC INSTABILITY
     Route: 042
  2. AMIODARONE [Suspect]
     Active Substance: AMIODARONE
     Route: 042
  3. FUROSEMIDE. [Concomitant]
     Active Substance: FUROSEMIDE
     Indication: ACUTE MYOCARDIAL INFARCTION
     Route: 048
  4. OMEPRAZOLE. [Concomitant]
     Active Substance: OMEPRAZOLE
     Indication: PRODUCT USED FOR UNKNOWN INDICATION
     Route: 065
     Dates: start: 2015
  5. URSODEOXYCHOLIC ACID [Concomitant]
     Active Substance: URSODIOL
     Indication: PRODUCT USED FOR UNKNOWN INDICATION
     Route: 065
     Dates: start: 2015
  6. METOPROLOL. [Concomitant]
     Active Substance: METOPROLOL
     Indication: PRODUCT USED FOR UNKNOWN INDICATION
     Route: 065
  7. AMIODARONE [Suspect]
     Active Substance: AMIODARONE
     Indication: CARDIOVERSION
     Route: 042
  8. FUROSEMIDE. [Concomitant]
     Active Substance: FUROSEMIDE
     Indication: DIURETIC THERAPY
     Route: 065
     Dates: start: 2015
  9. AMOXICILLIN, CLAVULANIC ACID [Interacting]
     Active Substance: AMOXICILLIN\CLAVULANIC ACID
     Indication: TOOTH INFECTION
     Route: 048
  10. RAMIPRIL. [Concomitant]
     Active Substance: RAMIPRIL
     Indication: ACUTE MYOCARDIAL INFARCTION
     Route: 065
     Dates: start: 2015
  11. LEVOTHYROXINE. [Concomitant]
     Active Substance: LEVOTHYROXINE
     Indication: HYPOTHYROIDISM
     Route: 065
     Dates: start: 2015
  12. APIXABAN [Concomitant]
     Active Substance: APIXABAN
     Indication: ANTICOAGULANT THERAPY
     Route: 065
     Dates: start: 2015
  13. BISOPROLOL [Concomitant]
     Active Substance: BISOPROLOL
     Indication: ACUTE MYOCARDIAL INFARCTION
     Route: 065
     Dates: start: 2015
  14. CANRENONE [Concomitant]
     Active Substance: CANRENONE
     Indication: DIURETIC THERAPY
     Route: 065
  15. ATORVASTATIN [Interacting]
     Active Substance: ATORVASTATIN
     Indication: BLOOD CHOLESTEROL INCREASED
     Route: 065
     Dates: start: 2015

REACTIONS (3)
  - Hepatotoxicity [Recovered/Resolved]
  - Liver injury [Recovered/Resolved]
  - Rhabdomyolysis [Recovered/Resolved]
